FAERS Safety Report 7399918-X (Version None)
Quarter: 2011Q2

REPORT INFORMATION
  Report Type: 
  Country: None (occurrence: None)
  Receive Date: 20110407
  Receipt Date: 20110324
  Transmission Date: 20111010
  Serious: Yes (Other)
  Sender: FDA-Public Use
  Company Number: US-JNJFOC-20110310816

PATIENT
  Sex: Female
  Weight: 61.24 kg

DRUGS (7)
  1. DURAGESIC [Suspect]
     Indication: DYSTONIA
     Route: 062
  2. BACLOFEN [Concomitant]
     Indication: DYSTONIA
     Route: 048
  3. PREVACID [Concomitant]
     Indication: DYSPEPSIA
     Route: 048
  4. PERCOCET [Concomitant]
     Indication: PAIN
     Dosage: 1-2 TABLETS EVERY 6 HOURS AS NEEDED
     Route: 048
  5. DURAGESIC [Suspect]
     Indication: BACK PAIN
     Route: 062
  6. NEURONTIN [Concomitant]
     Indication: CONVULSION
     Route: 048
  7. VALIUM [Concomitant]
     Indication: CONVULSION
     Route: 048

REACTIONS (5)
  - PRODUCT ADHESION ISSUE [None]
  - APPLICATION SITE ERYTHEMA [None]
  - SWELLING [None]
  - CONVULSION [None]
  - WRONG TECHNIQUE IN DRUG USAGE PROCESS [None]
